FAERS Safety Report 23759604 (Version 6)
Quarter: 2025Q2

REPORT INFORMATION
  Report Type: Spontaneous
  Country: JP (occurrence: JP)
  Receive Date: 20240418
  Receipt Date: 20250407
  Transmission Date: 20250716
  Serious: Yes (Hospitalization, Disabling, Other)
  Sender: GLAXOSMITHKLINE
  Company Number: JP-GSKJP-JP2024JPN041186AA

PATIENT

DRUGS (19)
  1. DAPRODUSTAT [Suspect]
     Active Substance: DAPRODUSTAT
     Indication: Nephrogenic anaemia
     Dosage: 4 MG, 1D
     Route: 048
     Dates: start: 20230315, end: 20230411
  2. DAPRODUSTAT [Suspect]
     Active Substance: DAPRODUSTAT
     Dosage: 2 MG, 1D
     Route: 048
     Dates: start: 20230412
  3. WARFARIN [Suspect]
     Active Substance: WARFARIN
     Indication: Atrial fibrillation
     Dosage: 1 MG, 1D
     Route: 048
     Dates: start: 20230201, end: 20230207
  4. WARFARIN [Suspect]
     Active Substance: WARFARIN
     Dosage: 1.5 MG, 1D
     Route: 048
     Dates: start: 20230208
  5. WARFARIN [Suspect]
     Active Substance: WARFARIN
     Dosage: 2 MG, 1D
     Route: 048
     Dates: start: 20230222
  6. WARFARIN [Suspect]
     Active Substance: WARFARIN
     Dosage: 2.5 MG, 1D
     Route: 048
     Dates: start: 20230301
  7. WARFARIN [Suspect]
     Active Substance: WARFARIN
     Dosage: 3 MG, 1D, THEN REDUCE
     Route: 048
     Dates: start: 20230315, end: 20230704
  8. WARFARIN [Suspect]
     Active Substance: WARFARIN
     Dosage: 0.5 MG, 1D
     Route: 048
     Dates: start: 20230705
  9. AZOSEMIDE [Suspect]
     Active Substance: AZOSEMIDE
     Indication: Oedema
     Dosage: 120 MG, 1D
     Route: 048
     Dates: start: 20230126, end: 20230314
  10. AZOSEMIDE [Suspect]
     Active Substance: AZOSEMIDE
     Dosage: 60 MG, 1D
     Route: 048
     Dates: start: 20230315, end: 20230509
  11. PLAVIX [Suspect]
     Active Substance: CLOPIDOGREL BISULFATE
     Indication: Peripheral artery thrombosis
     Dates: start: 20230727, end: 20240410
  12. TENELIGLIPTIN [Concomitant]
     Active Substance: TENELIGLIPTIN
     Indication: Diabetes mellitus
     Dosage: 20 MG, 1D
     Route: 048
     Dates: start: 20230125, end: 20230411
  13. VALSARTAN [Concomitant]
     Active Substance: VALSARTAN
     Indication: Hypertension
     Dosage: 40 MG, 1D
     Route: 048
     Dates: start: 20230125
  14. REPAGLINIDE [Concomitant]
     Active Substance: REPAGLINIDE
     Indication: Diabetes mellitus
     Dosage: 0.25 MG, TID
     Route: 048
     Dates: start: 20230125
  15. FEBUXOSTAT [Concomitant]
     Active Substance: FEBUXOSTAT
     Indication: Hyperuricaemia
     Dosage: 10 MG, 1D, AFTER BREAKFAST
     Route: 048
     Dates: start: 20230125
  16. LINAGLIPTIN [Concomitant]
     Active Substance: LINAGLIPTIN
     Indication: Diabetes mellitus
     Dosage: 5 MG, 1D, AFTER BREAKFAST
     Route: 048
     Dates: start: 20230412
  17. AZELNIDIPINE [Concomitant]
     Active Substance: AZELNIDIPINE
     Indication: Hypertension
     Dosage: 16 MG, 1D
     Route: 048
     Dates: start: 20230510, end: 20230704
  18. DEXTROMETHORPHAN [Concomitant]
     Active Substance: DEXTROMETHORPHAN
     Indication: Cough
     Dosage: 15 MG, TID
     Route: 048
     Dates: start: 20230607, end: 20230614
  19. FERROUS SULFATE [Concomitant]
     Active Substance: FERROUS SULFATE
     Indication: Iron deficiency anaemia
     Dosage: 105 MG, BID
     Route: 048
     Dates: start: 20230412, end: 20230509

REACTIONS (11)
  - Deep vein thrombosis [Recovering/Resolving]
  - Cerebral haemorrhage [Recovered/Resolved with Sequelae]
  - Peripheral arterial occlusive disease [Unknown]
  - Haemoglobin increased [Recovered/Resolved]
  - Pyrexia [Recovered/Resolved]
  - Oedema peripheral [Recovering/Resolving]
  - Myalgia [Recovering/Resolving]
  - Peripheral swelling [Recovering/Resolving]
  - Feeling hot [Recovering/Resolving]
  - Coronavirus infection [Recovered/Resolved]
  - Dehydration [Recovered/Resolved]

NARRATIVE: CASE EVENT DATE: 20230412
